FAERS Safety Report 15301708 (Version 3)
Quarter: 2018Q3

REPORT INFORMATION
  Report Type: Report from Study
  Country: US (occurrence: US)
  Receive Date: 20180821
  Receipt Date: 20180914
  Transmission Date: 20181010
  Serious: Yes (Other)
  Sender: FDA-Public Use
  Company Number: US-PFIZER INC-2018304103

PATIENT
  Age: 65 Year
  Sex: Female

DRUGS (4)
  1. FASLODEX [Concomitant]
     Active Substance: FULVESTRANT
     Dosage: UNK UNK, MONTHLY
  2. IBRANCE [Suspect]
     Active Substance: PALBOCICLIB
     Indication: BREAST CANCER
     Dosage: 125 MG ONCE DAILY CYCLIC (21 DAYS AND OFF 7 DAYS)
     Route: 048
     Dates: start: 20180713, end: 20180810
  3. IBRANCE [Suspect]
     Active Substance: PALBOCICLIB
     Dosage: 125 MG ONCE DAILY CYCLIC (21 DAYS AND OFF 7 DAYS)
     Route: 048
     Dates: start: 201808, end: 201808
  4. IBRANCE [Suspect]
     Active Substance: PALBOCICLIB
     Dosage: 125 MG ONCE DAILY CYCLIC (21 DAYS AND OFF 7 DAYS)
     Route: 048
     Dates: start: 201808, end: 201808

REACTIONS (12)
  - Bone marrow failure [Unknown]
  - Constipation [Unknown]
  - Blister [Unknown]
  - Insomnia [Recovered/Resolved]
  - Asthenia [Unknown]
  - Fatigue [Unknown]
  - Muscle spasms [Unknown]
  - Blood pressure decreased [Unknown]
  - Neutropenia [Unknown]
  - Pruritus generalised [Recovered/Resolved]
  - Pruritus [Recovered/Resolved]
  - Headache [Unknown]

NARRATIVE: CASE EVENT DATE: 201807
